FAERS Safety Report 20354468 (Version 3)
Quarter: 2022Q3

REPORT INFORMATION
  Report Type: Report from Study
  Country: US (occurrence: US)
  Receive Date: 20220120
  Receipt Date: 20220715
  Transmission Date: 20221026
  Serious: No
  Sender: FDA-Public Use
  Company Number: US-Ipsen Biopharmaceuticals, Inc.-2022-00285

PATIENT
  Age: 58 Year
  Sex: Female

DRUGS (2)
  1. SOMATULINE DEPOT [Suspect]
     Active Substance: LANREOTIDE ACETATE
     Indication: Carcinoid tumour of the small bowel
     Route: 058
     Dates: start: 201911
  2. SOMATULINE DEPOT [Suspect]
     Active Substance: LANREOTIDE ACETATE
     Indication: Carcinoid tumour of the liver
     Route: 058
     Dates: start: 202003

REACTIONS (8)
  - Injection site pain [Recovering/Resolving]
  - Weight decreased [Recovering/Resolving]
  - Diarrhoea [Recovering/Resolving]
  - Flatulence [Recovering/Resolving]
  - Thyroid hormones decreased [Recovering/Resolving]
  - Thyroid mass [Not Recovered/Not Resolved]
  - Abdominal discomfort [Unknown]
  - Feeling abnormal [Unknown]

NARRATIVE: CASE EVENT DATE: 20200101
